FAERS Safety Report 8491682-6 (Version None)
Quarter: 2012Q3

REPORT INFORMATION
  Report Type: 
  Country: None (occurrence: None)
  Receive Date: 20120706
  Receipt Date: 20120627
  Transmission Date: 20120928
  Serious: Yes (Death)
  Sender: FDA-Public Use
  Company Number: MX-BRISTOL-MYERS SQUIBB COMPANY-16723728

PATIENT
  Age: 63 Year
  Sex: Male

DRUGS (3)
  1. AVALIDE [Suspect]
     Route: 048
     Dates: end: 20120616
  2. ISOSORBIDE [Concomitant]
  3. CLOPIDOGREL BISULFATE [Concomitant]

REACTIONS (1)
  - MYOCARDIAL INFARCTION [None]
